APPROVED DRUG PRODUCT: ROXICET
Active Ingredient: ACETAMINOPHEN; OXYCODONE HYDROCHLORIDE
Strength: 325MG/5ML;5MG/5ML **Federal Register determination that product was not discontinued or withdrawn for safety or effectiveness reasons**
Dosage Form/Route: SOLUTION;ORAL
Application: A089351 | Product #001
Applicant: HIKMA PHARMACEUTICALS USA INC
Approved: Dec 3, 1986 | RLD: No | RS: No | Type: DISCN